FAERS Safety Report 24229156 (Version 2)
Quarter: 2024Q3

REPORT INFORMATION
  Report Type: Spontaneous
  Country: US (occurrence: US)
  Receive Date: 20240820
  Receipt Date: 20240826
  Transmission Date: 20241016
  Serious: No
  Sender: PFIZER
  Company Number: US-PFIZER INC-202400238619

PATIENT
  Age: 72 Year
  Sex: Female

DRUGS (1)
  1. PREMARIN [Suspect]
     Active Substance: ESTROGENS, CONJUGATED
     Dosage: UNK

REACTIONS (4)
  - Insomnia [Unknown]
  - Anxiety [Unknown]
  - Frustration tolerance decreased [Unknown]
  - Anger [Unknown]
